FAERS Safety Report 18071467 (Version 2)
Quarter: 2020Q3

REPORT INFORMATION
  Report Type: Spontaneous
  Country: US (occurrence: US)
  Receive Date: 20200727
  Receipt Date: 20200814
  Transmission Date: 20201103
  Serious: Yes (Life-Threatening, Hospitalization)
  Sender: FDA-Public Use
  Company Number: US-ROCHE-2649291

PATIENT
  Age: 45 Year
  Sex: Female
  Weight: 103 kg

DRUGS (20)
  1. CETIRIZINE [Concomitant]
     Active Substance: CETIRIZINE HYDROCHLORIDE
     Dosage: TAKE 10 MG BY MOUTH EVERY MORNING
     Route: 048
  2. DIVALPROEX [Concomitant]
     Active Substance: DIVALPROEX SODIUM
     Route: 048
     Dates: start: 20200128, end: 20200227
  3. CHANTIX [Concomitant]
     Active Substance: VARENICLINE TARTRATE
  4. MINOXIDIL. [Concomitant]
     Active Substance: MINOXIDIL
  5. COLACE [Concomitant]
     Active Substance: DOCUSATE SODIUM
     Indication: CONSTIPATION
     Dosage: TAKE 100 MG BY MOUTH 2 TIMES DAILY
     Route: 048
  6. ZOLOFT [Concomitant]
     Active Substance: SERTRALINE HYDROCHLORIDE
     Dosage: TAKE 0.5 TAB BY MOUTH EVERY MORNING
     Route: 048
     Dates: start: 20200128
  7. HYDROXYZINE [Concomitant]
     Active Substance: HYDROXYZINE HYDROCHLORIDE
     Dosage: TAKE 50 MG BY MOUTH, 3 TAB AT BEDTIME
     Route: 048
  8. CYMBALTA [Concomitant]
     Active Substance: DULOXETINE HYDROCHLORIDE
     Dosage: TAKE 60 MG BY MOUTH EVERY MORNING
     Route: 048
  9. GABAPENTIN. [Concomitant]
     Active Substance: GABAPENTIN
     Dosage: TAKE 300 MG BY MOUTH 3 TIMES DAILY. PT TAKES DIFFERENTLY , SHE TAKES AT BEDTIME ONLY
     Route: 048
  10. OMEPRAZOLE. [Concomitant]
     Active Substance: OMEPRAZOLE
     Dosage: TAKE 40 MG BY MOUTH ONCE DAILY BEFORE MEAL
     Route: 048
  11. TOPIRAMATE. [Concomitant]
     Active Substance: TOPIRAMATE
     Dosage: TAKE 100 MG BY MOUTH EVERY DAY AT BEDTIME. 4 TABLETS AT BEDTIME
     Route: 048
  12. LISINOPRILHYDROCHLOROTHIAZIDE RATIOPHARM [Concomitant]
     Dosage: 10?12.5MG PER TABLET
  13. EPIPEN [Concomitant]
     Active Substance: EPINEPHRINE
     Indication: HYPERSENSITIVITY
     Dosage: INJECT 0.3 MG INTO THE MUSCLE ONE TIME IF NEEDED FOR ALLERGIC REACTION
     Route: 030
  14. FLONASE [Concomitant]
     Active Substance: FLUTICASONE PROPIONATE
     Dosage: 1 SPRAY EVERY MORNING
     Route: 045
  15. GINKGO BILOBA [Concomitant]
     Active Substance: GINKGO
     Dosage: TAKE 1 CAPSULE BY MOUTH EVERY MORNING
     Route: 048
  16. XOLAIR [Suspect]
     Active Substance: OMALIZUMAB
     Indication: CHRONIC SPONTANEOUS URTICARIA
     Dosage: DATE OF TREATMENT? 28/NOV/2018, 15/FEB/2018, 29/MAR/2019, 01/MAY/2019, 05/JUN/2019,?10/JUL/2019, 09/
     Route: 058
     Dates: start: 20181128, end: 20191218
  17. SEROQUEL [Concomitant]
     Active Substance: QUETIAPINE FUMARATE
     Dosage: TAKE 2 TABLETS BY MOUTH EVERY DAY AT BEDTIME
     Route: 048
     Dates: start: 20200128
  18. ZOLOFT [Concomitant]
     Active Substance: SERTRALINE HYDROCHLORIDE
     Route: 048
     Dates: start: 20200128
  19. ASPIRIN. [Concomitant]
     Active Substance: ASPIRIN
     Dosage: TAKE 81 MG BY MOUTH EVERY MORNING
     Route: 048
  20. OXYBUTYNIN. [Concomitant]
     Active Substance: OXYBUTYNIN CHLORIDE
     Dosage: TAKE 5 MG BY MOUTH EVERY MORNING
     Route: 048
     Dates: start: 20190926

REACTIONS (2)
  - Acute lung injury [Recovering/Resolving]
  - Pneumonia [Unknown]

NARRATIVE: CASE EVENT DATE: 20200117
